FAERS Safety Report 7919854-7 (Version None)
Quarter: 2011Q4

REPORT INFORMATION
  Report Type: 
  Country: None (occurrence: None)
  Receive Date: 20111115
  Receipt Date: 20111102
  Transmission Date: 20120403
  Serious: Yes (Hospitalization)
  Sender: FDA-Public Use
  Company Number: 2011SP051579

PATIENT
  Age: 56 Year
  Sex: Male
  Weight: 85 kg

DRUGS (12)
  1. CALCIUM CARBONATE [Concomitant]
  2. TEMOZOLOMIDE [Suspect]
     Indication: GLIOBLASTOMA
     Dosage: 920 MG;QOW;IV, IV
     Dates: start: 20100719, end: 20110202
  3. TEMOZOLOMIDE [Suspect]
     Indication: GLIOBLASTOMA
     Dosage: 920 MG;QOW;IV, IV
     Dates: start: 20110301
  4. TEMOZOLOMIDE [Suspect]
     Indication: PRODUCT USED FOR UNKNOWN INDICATION
     Dosage: 320 MG;PO
     Route: 048
     Dates: start: 20100719
  5. PAMOL [Concomitant]
  6. KEPPRA [Concomitant]
  7. OXYCODONE HCL [Concomitant]
  8. ONDANSETRON [Concomitant]
  9. CILAXORAL [Concomitant]
  10. RANITIDINE HCL [Concomitant]
  11. ACETAMINOPHEN [Concomitant]
  12. BETAPRED [Concomitant]

REACTIONS (1)
  - DEEP VEIN THROMBOSIS [None]
